FAERS Safety Report 7905786-7 (Version None)
Quarter: 2011Q4

REPORT INFORMATION
  Report Type: 
  Country: None (occurrence: None)
  Receive Date: 20111108
  Receipt Date: 20111025
  Transmission Date: 20120403
  Serious: Yes (Other)
  Sender: FDA-Public Use
  Company Number: 2011PL000150

PATIENT
  Sex: Female

DRUGS (1)
  1. LOTRONEX [Suspect]
     Indication: DIARRHOEA
     Dosage: 7 MG; TOTAL

REACTIONS (2)
  - INCORRECT DOSE ADMINISTERED [None]
  - HEPATIC FAILURE [None]
